FAERS Safety Report 25331127 (Version 1)
Quarter: 2025Q2

REPORT INFORMATION
  Report Type: Report from Study
  Country: FI (occurrence: FI)
  Receive Date: 20250519
  Receipt Date: 20250519
  Transmission Date: 20250717
  Serious: Yes (Other)
  Sender: GILEAD
  Company Number: FI-GILEAD-2025-0713327

PATIENT
  Sex: Female

DRUGS (1)
  1. SACITUZUMAB GOVITECAN-HZIY [Suspect]
     Active Substance: SACITUZUMAB GOVITECAN-HZIY
     Indication: Triple negative breast cancer
     Route: 065

REACTIONS (4)
  - Haematotoxicity [Unknown]
  - Haematological infection [Unknown]
  - Fatigue [Unknown]
  - Nausea [Unknown]
